FAERS Safety Report 9975326 (Version 1)
Quarter: 2014Q1

REPORT INFORMATION
  Report Type: Report from Study
  Country: US (occurrence: US)
  Receive Date: 20140306
  Receipt Date: 20140306
  Transmission Date: 20141002
  Serious: No
  Sender: FDA-Public Use
  Company Number: US-ABBVIE-13P-163-1155530-00

PATIENT
  Age: 47 Year
  Sex: Female

DRUGS (8)
  1. HUMIRA [Suspect]
     Indication: RHEUMATOID ARTHRITIS
     Dates: start: 20130909
  2. SIMVASTATIN [Concomitant]
     Indication: BLOOD CHOLESTEROL INCREASED
     Dosage: 20 MG DAILY
  3. LISINOPRIL [Concomitant]
     Indication: HYPERTENSION
     Dosage: DAILY
  4. VITAMINS NOS [Concomitant]
     Indication: PRODUCT USED FOR UNKNOWN INDICATION
  5. VITAMIN D [Concomitant]
     Indication: PRODUCT USED FOR UNKNOWN INDICATION
  6. METHOTREXATE [Concomitant]
     Indication: PRODUCT USED FOR UNKNOWN INDICATION
     Dosage: 5 2.5 MG TABLETS WEEKLY
  7. PREDNISONE [Concomitant]
     Indication: RHEUMATOID ARTHRITIS
  8. METHIMAZOLE [Concomitant]
     Indication: HYPERTHYROIDISM

REACTIONS (2)
  - Fatigue [Recovered/Resolved]
  - Nausea [Recovered/Resolved]
